FAERS Safety Report 15776839 (Version 1)
Quarter: 2018Q4

REPORT INFORMATION
  Report Type: Spontaneous
  Country: US (occurrence: US)
  Receive Date: 20181231
  Receipt Date: 20181231
  Transmission Date: 20190205
  Serious: No
  Sender: FDA-Public Use
  Company Number: US-PFIZER INC-2018527447

PATIENT
  Age: 72 Year
  Sex: Male

DRUGS (2)
  1. ZOLOFT [Suspect]
     Active Substance: SERTRALINE HYDROCHLORIDE
     Dosage: UNK
  2. ZOLOFT [Suspect]
     Active Substance: SERTRALINE HYDROCHLORIDE
     Dosage: UNK
     Dates: end: 20181218

REACTIONS (10)
  - Dizziness postural [Unknown]
  - Vertigo [Unknown]
  - Drug ineffective [Unknown]
  - Abdominal pain upper [Unknown]
  - Feeling abnormal [Unknown]
  - Abnormal sensation in eye [Unknown]
  - Loss of personal independence in daily activities [Unknown]
  - Change of bowel habit [Unknown]
  - Motion sickness [Unknown]
  - Vomiting [Unknown]
